FAERS Safety Report 9089576 (Version 3)
Quarter: 2013Q1

REPORT INFORMATION
  Report Type: Report from Study
  Country: CA (occurrence: CA)
  Receive Date: 20130201
  Receipt Date: 20130325
  Transmission Date: 20140127
  Serious: Yes (Other)
  Sender: FDA-Public Use
  Company Number: CA-ABBOTT-13P-028-1038431-00

PATIENT
  Sex: Female
  Weight: 78.2 kg

DRUGS (3)
  1. HUMIRA [Suspect]
     Indication: CROHN^S DISEASE
     Route: 058
     Dates: start: 20121015, end: 20130106
  2. METHOTREXATE [Concomitant]
     Indication: PRODUCT USED FOR UNKNOWN INDICATION
  3. FOLIC ACID [Concomitant]
     Indication: PRODUCT USED FOR UNKNOWN INDICATION

REACTIONS (7)
  - Anal fistula [Not Recovered/Not Resolved]
  - Drug ineffective [Unknown]
  - Localised oedema [Not Recovered/Not Resolved]
  - Proctalgia [Not Recovered/Not Resolved]
  - Perianal erythema [Not Recovered/Not Resolved]
  - Anorectal discomfort [Not Recovered/Not Resolved]
  - Frequent bowel movements [Not Recovered/Not Resolved]
